FAERS Safety Report 10248866 (Version 1)
Quarter: 2014Q2

REPORT INFORMATION
  Report Type: Report from Study
  Country: CA (occurrence: CA)
  Receive Date: 20140620
  Receipt Date: 20140620
  Transmission Date: 20141212
  Serious: Yes (Hospitalization)
  Sender: FDA-Public Use
  Company Number: CA-JNJFOC-20140610519

PATIENT
  Age: 53 Year
  Sex: Male
  Weight: 75.8 kg

DRUGS (1)
  1. REMICADE [Suspect]
     Indication: CROHN^S DISEASE
     Route: 042
     Dates: start: 20071024

REACTIONS (3)
  - Pneumonia [Unknown]
  - Anal fissure [Unknown]
  - Cellulitis [Unknown]
